FAERS Safety Report 6615128-5 (Version None)
Quarter: 2010Q1

REPORT INFORMATION
  Report Type: 
  Country: None (occurrence: None)
  Receive Date: 20100305
  Receipt Date: 20100225
  Transmission Date: 20100710
  Serious: Yes (Other)
  Sender: FDA-Public Use
  Company Number: BR-BRISTOL-MYERS SQUIBB COMPANY-14996557

PATIENT
  Sex: Female

DRUGS (1)
  1. APROVEL TABS 300 MG [Suspect]
     Dates: start: 19980101

REACTIONS (1)
  - GASTROINTESTINAL CARCINOMA [None]
